FAERS Safety Report 5401640-3 (Version None)
Quarter: 2007Q3

REPORT INFORMATION
  Report Type: 
  Country: None (occurrence: None)
  Receive Date: 20070731
  Receipt Date: 20070719
  Transmission Date: 20080115
  Serious: Yes (Death, Other)
  Sender: FDA-Public Use
  Company Number: IE-PFIZER INC-2007030242

PATIENT
  Sex: Female

DRUGS (1)
  1. ISTIN [Suspect]
     Route: 048

REACTIONS (1)
  - PANCREATIC CARCINOMA [None]
